FAERS Safety Report 9028947 (Version 1)
Quarter: 2013Q1

REPORT INFORMATION
  Report Type: Spontaneous
  Country: US (occurrence: US)
  Receive Date: 20130124
  Receipt Date: 20130124
  Transmission Date: 20140127
  Serious: Yes (Other)
  Sender: FDA-Public Use
  Company Number: US-ASTRAZENECA-2006UW14482

PATIENT
  Age: 74 Year
  Sex: Female
  Weight: 90.3 kg

DRUGS (14)
  1. CRESTOR [Suspect]
     Route: 048
     Dates: start: 200607
  2. NEXIUM [Suspect]
     Indication: GASTROOESOPHAGEAL REFLUX DISEASE
     Route: 048
  3. FASLODEX [Suspect]
     Indication: BREAST CANCER METASTATIC
     Route: 030
  4. FASLODEX [Suspect]
     Indication: BREAST CANCER METASTATIC
     Route: 030
  5. LISINOPRIL [Suspect]
     Indication: HYPERTENSION
     Route: 048
  6. METFORMIN [Concomitant]
     Indication: DIABETES MELLITUS
     Route: 048
  7. BYSTOLIC [Concomitant]
     Indication: HYPERTENSION
     Route: 048
  8. HYDROCHLOROTHIAZIDE [Concomitant]
     Indication: HYPERTENSION
     Route: 048
  9. NORVASC [Concomitant]
     Indication: HYPERTENSION
     Route: 048
  10. GLYBURIDE [Concomitant]
     Indication: DIABETES MELLITUS
     Route: 048
  11. ASPIRIN [Concomitant]
     Route: 048
  12. FISH OIL [Concomitant]
     Dosage: DAILY
     Route: 048
  13. CALTRATE [Concomitant]
     Indication: MINERAL SUPPLEMENTATION
     Route: 048
  14. CENTRUM [Concomitant]
     Route: 048

REACTIONS (5)
  - Breast cancer metastatic [Unknown]
  - Fatigue [Unknown]
  - Type 2 diabetes mellitus [Unknown]
  - Headache [Unknown]
  - Intentional drug misuse [Unknown]
